FAERS Safety Report 7144752-9 (Version None)
Quarter: 2010Q4

REPORT INFORMATION
  Report Type: 
  Country: None (occurrence: None)
  Receive Date: 20101119
  Receipt Date: 20100121
  Transmission Date: 20110411
  Serious: Yes (Hospitalization)
  Sender: FDA-Public Use
  Company Number: UTC-000819

PATIENT
  Age: 73 Year
  Sex: Female
  Weight: 55.8 kg

DRUGS (17)
  1. TYVASO [Suspect]
     Indication: PULMONARY ARTERIAL HYPERTENSION
     Dosage: (72 MCG, 1 IN 1 D), INHALATION
     Route: 055
     Dates: start: 20091111, end: 20100120
  2. TRACLEER [Concomitant]
  3. LASIX [Concomitant]
  4. ADCIRCA [Concomitant]
  5. DIGOXIN [Concomitant]
  6. ALBUTEROL [Concomitant]
  7. OXYGEN (OXYGEN) [Concomitant]
  8. ZETIA [Concomitant]
  9. ADVAIR DISKUS 100/50 [Concomitant]
  10. ADVIL LIQUI-GELS [Concomitant]
  11. CYMBALTA [Concomitant]
  12. CRESTOR [Concomitant]
  13. TORSEMIDE [Concomitant]
  14. LACTULOSE [Concomitant]
  15. NEXIUM [Concomitant]
  16. ALDACTONE [Concomitant]
  17. POTASSIUM CHLORIDE [Concomitant]

REACTIONS (3)
  - COUGH [None]
  - HEADACHE [None]
  - THROAT IRRITATION [None]
